FAERS Safety Report 18520318 (Version 2)
Quarter: 2021Q3

REPORT INFORMATION
  Report Type: Spontaneous
  Country: HR (occurrence: HR)
  Receive Date: 20201119
  Receipt Date: 20210803
  Transmission Date: 20211014
  Serious: Yes (Hospitalization, Other)
  Sender: FDA-Public Use
  Company Number: HR-MACLEODS PHARMACEUTICALS US LTD-MAC2020029148

PATIENT

DRUGS (1)
  1. IBANDRONATE [Suspect]
     Active Substance: IBANDRONATE SODIUM
     Indication: OSTEOPOROSIS
     Dosage: UNK, IBANDRONIC ACID
     Route: 048

REACTIONS (3)
  - Jaw fistula [Recovered/Resolved]
  - Osteolysis [Unknown]
  - Osteonecrosis of jaw [Recovered/Resolved]
